FAERS Safety Report 25047509 (Version 1)
Quarter: 2025Q1

REPORT INFORMATION
  Report Type: Spontaneous
  Country: GB (occurrence: GB)
  Receive Date: 20250306
  Receipt Date: 20250306
  Transmission Date: 20250409
  Serious: Yes (Other)
  Sender: MERCK SHARP & DOHME LLC
  Company Number: None

PATIENT
  Age: 1 Year
  Sex: Female

DRUGS (2)
  1. MEASLES-MUMPS-RUBELLA-VARICELLA VIRUS VACCINE, LIVE [Suspect]
     Active Substance: MEASLES-MUMPS-RUBELLA-VARICELLA VIRUS VACCINE, LIVE
     Indication: Prophylaxis
     Dates: start: 20250219
  2. MEASLES-MUMPS-RUBELLA-VARICELLA VIRUS VACCINE, LIVE [Suspect]
     Active Substance: MEASLES-MUMPS-RUBELLA-VARICELLA VIRUS VACCINE, LIVE
     Indication: Prophylaxis
     Dates: start: 20250219

REACTIONS (5)
  - Pyrexia [Recovering/Resolving]
  - Pharyngeal swelling [Unknown]
  - Swelling face [Unknown]
  - Swelling of eyelid [Unknown]
  - Ear swelling [Unknown]

NARRATIVE: CASE EVENT DATE: 20250224
